FAERS Safety Report 9367337 (Version 1)
Quarter: 2013Q2

REPORT INFORMATION
  Report Type: Spontaneous
  Country: IT (occurrence: IT)
  Receive Date: 20130625
  Receipt Date: 20130625
  Transmission Date: 20140414
  Serious: Yes (Hospitalization)
  Sender: FDA-Public Use
  Company Number: IT-TEVA-413245ISR

PATIENT
  Age: 64 Year
  Sex: Male
  Weight: 59 kg

DRUGS (6)
  1. IRINOTECAN [Suspect]
     Indication: COLON NEOPLASM
     Dosage: 180MG/M3 CYCLICAL; SOLUTION FOR INTRAVENOUS INFUSION
     Route: 042
     Dates: start: 20121220, end: 20130426
  2. AVASTIN [Suspect]
     Indication: COLON NEOPLASM
     Dosage: 435MG CYCLICAL; CONCENTRATE FOR SOLUTION FOR INFUSION
     Route: 042
     Dates: start: 20130222, end: 20130426
  3. ONDANSETRON CLORIDRATO DIIDRATO [Suspect]
     Indication: PREMEDICATION
     Dosage: 8MG CYCLICAL
     Route: 042
     Dates: start: 20121220, end: 20130426
  4. ZANTAC 50MG/5ML [Concomitant]
     Indication: PREMEDICATION
     Dates: start: 20121220, end: 20130426
  5. XELODA [Concomitant]
     Indication: COLON NEOPLASM
     Dates: start: 20121220, end: 20130426
  6. DESAMETASONE FOSFATO [Concomitant]
     Indication: PREMEDICATION
     Dates: start: 20121220, end: 20130426

REACTIONS (2)
  - Subileus [Recovered/Resolved]
  - Hypertension [Recovered/Resolved]
